FAERS Safety Report 8340238-4 (Version None)
Quarter: 2012Q2

REPORT INFORMATION
  Report Type: 
  Country: None (occurrence: None)
  Receive Date: 20120507
  Receipt Date: 20120430
  Transmission Date: 20120825
  Serious: Yes (Hospitalization, Other)
  Sender: FDA-Public Use
  Company Number: PHHY2012EC015737

PATIENT
  Sex: Male

DRUGS (2)
  1. EXFORGE [Suspect]
     Dosage: UNK UKN, UNK
  2. EXFORGE HCT [Suspect]
     Indication: HYPERTENSION
     Dosage: 1 TABLET (160/5/12.5 MG), UNK
     Route: 048
     Dates: start: 20081007

REACTIONS (3)
  - PAIN IN EXTREMITY [None]
  - CEREBELLAR INFARCTION [None]
  - MUSCULOSKELETAL PAIN [None]
